FAERS Safety Report 5926341-4 (Version None)
Quarter: 2008Q4

REPORT INFORMATION
  Report Type: 
  Country: None (occurrence: None)
  Receive Date: 20081022
  Receipt Date: 20081014
  Transmission Date: 20090506
  Serious: Yes (Other)
  Sender: FDA-Public Use
  Company Number: JP-BAYER-200812452BYL

PATIENT
  Age: 73 Year
  Sex: Male
  Weight: 81 kg

DRUGS (4)
  1. NEXAVAR [Suspect]
     Indication: RENAL CELL CARCINOMA STAGE IV
     Dosage: UNIT DOSE: 200 MG
     Route: 048
     Dates: start: 20080602, end: 20080623
  2. NEXAVAR [Suspect]
     Dosage: UNIT DOSE: 200 MG
     Route: 048
     Dates: start: 20080703, end: 20080710
  3. PURSENNID [Concomitant]
     Dosage: AS USED: 24 MG
     Route: 048
     Dates: start: 20080612, end: 20080619
  4. SILECE [Concomitant]
     Dosage: AS USED: 1 MG
     Route: 048
     Dates: start: 20080626, end: 20080710

REACTIONS (3)
  - HEPATIC FUNCTION ABNORMAL [None]
  - HYPERTENSION [None]
  - PALMAR-PLANTAR ERYTHRODYSAESTHESIA SYNDROME [None]
